FAERS Safety Report 12655410 (Version 1)
Quarter: 2016Q3

REPORT INFORMATION
  Report Type: Report from Study
  Country: MX (occurrence: MX)
  Receive Date: 20160816
  Receipt Date: 20160816
  Transmission Date: 20161109
  Serious: Yes (Life-Threatening)
  Sender: FDA-Public Use
  Company Number: MX-AMGEN-MEXSL2016083347

PATIENT
  Age: 46 Year
  Sex: Male
  Weight: 65 kg

DRUGS (2)
  1. VECTIBIX [Suspect]
     Active Substance: PANITUMUMAB
     Indication: COLORECTAL CANCER METASTATIC
     Dosage: 300 MG, Q15D
     Route: 042
     Dates: start: 20151001
  2. VECTIBIX [Suspect]
     Active Substance: PANITUMUMAB
     Indication: METASTASES TO LIVER

REACTIONS (7)
  - Cheilitis [Not Recovered/Not Resolved]
  - Alopecia [Recovering/Resolving]
  - Skin disorder [Recovering/Resolving]
  - Oral herpes [Not Recovered/Not Resolved]
  - Acne [Recovering/Resolving]
  - Scab [Recovering/Resolving]
  - Dermatitis acneiform [Not Recovered/Not Resolved]

NARRATIVE: CASE EVENT DATE: 20151003
